FAERS Safety Report 4950285-8 (Version None)
Quarter: 2006Q1

REPORT INFORMATION
  Report Type: 
  Country: None (occurrence: None)
  Receive Date: 20060315
  Receipt Date: 20060224
  Transmission Date: 20060701
  Serious: Yes (Other)
  Sender: FDA-Public Use
  Company Number: WAES0602USA04272

PATIENT
  Age: 28 Year
  Sex: Male

DRUGS (4)
  1. MAXALT [Suspect]
     Indication: MIGRAINE WITH AURA
     Dosage: 10 MG/PRN PO
     Route: 048
     Dates: start: 20051230, end: 20051230
  2. NAUZELIN [Concomitant]
  3. NONSTEROIDAL ANTI-INFLAMMATORY DRUG [Concomitant]
  4. THERAPY UNSPECIFIED [Concomitant]

REACTIONS (6)
  - ANXIETY [None]
  - CONDITION AGGRAVATED [None]
  - DYSPNOEA [None]
  - FEAR [None]
  - MIGRAINE [None]
  - PARADOXICAL DRUG REACTION [None]
